APPROVED DRUG PRODUCT: EZETIMIBE AND SIMVASTATIN
Active Ingredient: EZETIMIBE; SIMVASTATIN
Strength: 10MG;80MG
Dosage Form/Route: TABLET;ORAL
Application: A208699 | Product #004 | TE Code: AB
Applicant: GLENMARK PHARMACEUTICALS LTD
Approved: Jun 27, 2019 | RLD: No | RS: No | Type: RX